FAERS Safety Report 17125616 (Version 1)
Quarter: 2019Q4

REPORT INFORMATION
  Report Type: Spontaneous
  Country: PL (occurrence: PL)
  Receive Date: 20191208
  Receipt Date: 20191208
  Transmission Date: 20200122
  Serious: Yes (Hospitalization)
  Sender: FDA-Public Use
  Company Number: NVSC2019PL054949

PATIENT
  Age: 60 Year
  Sex: Female

DRUGS (20)
  1. CYCLOPHOSPHAMIDE. [Suspect]
     Active Substance: CYCLOPHOSPHAMIDE
     Dosage: 400 MG, QD DAYS 1-3
     Route: 065
  2. FLUDARABINE PHOSPHATE. [Suspect]
     Active Substance: FLUDARABINE PHOSPHATE
     Indication: CHRONIC LYMPHOCYTIC LEUKAEMIA STAGE 4
     Dosage: 40 MG, QD, DAY 1-3
     Route: 065
  3. DEXAMETHASONE. [Suspect]
     Active Substance: DEXAMETHASONE
     Dosage: 40 MG, QD DAY 1 (FIRST LINE TREATMENT)
     Route: 065
  4. METHYLPREDNISOLONE. [Concomitant]
     Active Substance: METHYLPREDNISOLONE
     Indication: CHRONIC LYMPHOCYTIC LEUKAEMIA
     Dosage: UNK
     Route: 065
  5. CYCLOPHOSPHAMIDE. [Suspect]
     Active Substance: CYCLOPHOSPHAMIDE
     Indication: CHRONIC LYMPHOCYTIC LEUKAEMIA STAGE 4
     Dosage: 1000 MG, QD DAY 1 (FIRST LINE OF TREATMENT)
     Route: 065
  6. CYCLOPHOSPHAMIDE. [Suspect]
     Active Substance: CYCLOPHOSPHAMIDE
     Dosage: 1300 MG, QD DAY 1 (SECOND LINE OF TREATMENT)
     Route: 065
  7. FLUDARABINE PHOSPHATE. [Suspect]
     Active Substance: FLUDARABINE PHOSPHATE
     Dosage: 42.5 MG, QD, DAY 1-3
     Route: 065
  8. DEXAMETHASONE. [Suspect]
     Active Substance: DEXAMETHASONE
     Indication: CHRONIC LYMPHOCYTIC LEUKAEMIA STAGE 4
     Dosage: 12 MG, QD DAY 1-7 (SECOND LINE TREATMENT)
     Route: 065
  9. SIMVASTATIN. [Concomitant]
     Active Substance: SIMVASTATIN
     Indication: HYPERCHOLESTEROLAEMIA
     Dosage: 20 MG, QD
     Route: 065
  10. RITUXIMAB. [Suspect]
     Active Substance: RITUXIMAB
     Indication: CHRONIC LYMPHOCYTIC LEUKAEMIA STAGE 4
     Dosage: 600 MG, QD,, DAY 1
     Route: 065
  11. RITUXIMAB. [Suspect]
     Active Substance: RITUXIMAB
     Dosage: 650 MG/DAY DAY 1 (SECOND LINE TREATMENT)
     Route: 065
  12. FLUDARABINE PHOSPHATE. [Suspect]
     Active Substance: FLUDARABINE PHOSPHATE
     Dosage: UNK
     Route: 065
  13. RAMIPRIL. [Concomitant]
     Active Substance: RAMIPRIL
     Indication: HYPERTENSION
     Dosage: 5 MG, QD
     Route: 065
  14. METFORMIN [Concomitant]
     Active Substance: METFORMIN HYDROCHLORIDE
     Indication: STEROID DIABETES
     Dosage: 850 MG, QD
     Route: 065
  15. RITUXIMAB. [Suspect]
     Active Substance: RITUXIMAB
     Dosage: 850 MG, QD, DAY 1
     Route: 065
  16. RITUXIMAB. [Suspect]
     Active Substance: RITUXIMAB
     Dosage: 640 MG, QD, DAY 1
     Route: 065
  17. RITUXIMAB. [Suspect]
     Active Substance: RITUXIMAB
     Dosage: 650, MG/DAY DAY 1 (FIRST LINE TREATMENT)
     Route: 065
  18. CYCLOPHOSPHAMIDE. [Suspect]
     Active Substance: CYCLOPHOSPHAMIDE
     Dosage: 425 MG, QD DAYS 1-3
     Route: 065
  19. CYCLOPHOSPHAMIDE. [Suspect]
     Active Substance: CYCLOPHOSPHAMIDE
     Dosage: 400 MG, QD DAYS 1-3
     Route: 065
  20. FLUDARABINE PHOSPHATE. [Suspect]
     Active Substance: FLUDARABINE PHOSPHATE
     Dosage: 40 MG, QD, DAY 1-3
     Route: 065

REACTIONS (9)
  - Pulmonary embolism [Unknown]
  - Fatigue [Unknown]
  - Pyrexia [Unknown]
  - Dyspnoea exertional [Unknown]
  - Breath sounds abnormal [Unknown]
  - Tachycardia [Unknown]
  - Chest pain [Unknown]
  - Heart rate increased [Unknown]
  - Malaise [Unknown]
